FAERS Safety Report 10026824 (Version 3)
Quarter: 2014Q2

REPORT INFORMATION
  Report Type: Spontaneous
  Country: JP (occurrence: JP)
  Receive Date: 20140321
  Receipt Date: 20140616
  Transmission Date: 20141212
  Serious: Yes (Other)
  Sender: FDA-Public Use
  Company Number: JP-ASTRAZENECA-2014SE12114

PATIENT
  Sex: Female

DRUGS (5)
  1. SEROQUEL [Suspect]
     Indication: PRODUCT USED FOR UNKNOWN INDICATION
     Route: 048
  2. LODOPIN [Concomitant]
  3. LULLAN [Concomitant]
  4. ABILIFY [Concomitant]
  5. HIRNAMIN [Concomitant]

REACTIONS (3)
  - Depressed level of consciousness [Not Recovered/Not Resolved]
  - Dysarthria [Unknown]
  - Weight decreased [Unknown]
